FAERS Safety Report 23715086 (Version 1)
Quarter: 2024Q2

REPORT INFORMATION
  Report Type: Spontaneous
  Country: TR (occurrence: TR)
  Receive Date: 20240406
  Receipt Date: 20240406
  Transmission Date: 20240716
  Serious: Yes (Other)
  Sender: FDA-Public Use
  Company Number: TR-AMGEN-TURSP2024064793

PATIENT
  Sex: Male

DRUGS (1)
  1. PROLIA [Suspect]
     Active Substance: DENOSUMAB
     Indication: Osteoporosis
     Dosage: UNK, Q6MO (1 IN 6 MONTHS )
     Route: 065

REACTIONS (4)
  - Syncope [Recovered/Resolved]
  - Malaise [Unknown]
  - Cold sweat [Unknown]
  - Blood pressure decreased [Unknown]
